FAERS Safety Report 11506216 (Version 1)
Quarter: 2015Q3

REPORT INFORMATION
  Report Type: Spontaneous
  Country: US (occurrence: None)
  Receive Date: 20150911
  Receipt Date: 20150911
  Transmission Date: 20151125
  Serious: Yes (Death, Hospitalization, Other)
  Sender: FDA-Public Use
  Company Number: US-ZYDUS-008962

PATIENT
  Age: 59 Year
  Sex: Female

DRUGS (1)
  1. OXYCODONE HCL [Suspect]
     Active Substance: OXYCODONE HYDROCHLORIDE
     Indication: PRODUCT USED FOR UNKNOWN INDICATION

REACTIONS (10)
  - Hypoxia [None]
  - Abnormal behaviour [None]
  - Disease recurrence [None]
  - Respiratory failure [None]
  - Overdose [None]
  - Leukoencephalopathy [None]
  - Unresponsive to stimuli [None]
  - Mania [None]
  - Parkinsonism [None]
  - Catatonia [None]
